FAERS Safety Report 6291667-4 (Version None)
Quarter: 2009Q3

REPORT INFORMATION
  Report Type: 
  Country: None (occurrence: None)
  Receive Date: 20090730
  Receipt Date: 20090730
  Transmission Date: 20100115
  Serious: Yes (Other)
  Sender: FDA-Public Use
  Company Number: None

PATIENT
  Age: 25 Year
  Sex: Female
  Weight: 49.8957 kg

DRUGS (1)
  1. TERCONAZOLE [Suspect]
     Indication: VULVOVAGINAL MYCOTIC INFECTION
     Dosage: 80 MG ONCE AT BEDTIME VAG
     Route: 067
     Dates: start: 20090725, end: 20090725

REACTIONS (7)
  - ABDOMINAL PAIN [None]
  - CHILLS [None]
  - HEADACHE [None]
  - INFLUENZA [None]
  - INFLUENZA LIKE ILLNESS [None]
  - PAIN [None]
  - VULVOVAGINAL PAIN [None]
